FAERS Safety Report 12670960 (Version 1)
Quarter: 2016Q3

REPORT INFORMATION
  Report Type: Spontaneous
  Country: US (occurrence: US)
  Receive Date: 20160822
  Receipt Date: 20160822
  Transmission Date: 20161109
  Serious: No
  Sender: FDA-Public Use
  Company Number: US-JAZZ-2016-US-006064

PATIENT
  Sex: Female

DRUGS (29)
  1. BIOTIN [Concomitant]
     Active Substance: BIOTIN
  2. BABY ASPIRIN [Concomitant]
     Active Substance: ASPIRIN
  3. MAGNESIUM OXIDE. [Concomitant]
     Active Substance: MAGNESIUM OXIDE
  4. FISH OIL [Concomitant]
     Active Substance: FISH OIL
  5. DILTZAC [Concomitant]
     Active Substance: DILTIAZEM HYDROCHLORIDE
  6. KLOR-CON [Concomitant]
     Active Substance: POTASSIUM CHLORIDE
  7. ALLEGRA [Concomitant]
     Active Substance: FEXOFENADINE HYDROCHLORIDE
  8. DEXADRIN [Concomitant]
     Active Substance: DEXAMETHASONE
  9. LISINOPRIL. [Concomitant]
     Active Substance: LISINOPRIL
  10. DYMISTA [Concomitant]
     Active Substance: AZELASTINE HYDROCHLORIDE\FLUTICASONE PROPIONATE
  11. ESTRADIOL. [Concomitant]
     Active Substance: ESTRADIOL
  12. XYREM [Suspect]
     Active Substance: SODIUM OXYBATE
     Dosage: 2.25 G, BID
     Route: 048
     Dates: start: 201601, end: 201601
  13. XYREM [Suspect]
     Active Substance: SODIUM OXYBATE
     Dosage: 3 G, BID
     Route: 048
     Dates: start: 201601
  14. HYDROXYTRYPTOPHAN [Concomitant]
     Active Substance: OXITRIPTAN
  15. MELOXICAM. [Concomitant]
     Active Substance: MELOXICAM
  16. CALCIUM [Concomitant]
     Active Substance: CALCIUM
  17. LAMISIL [Concomitant]
     Active Substance: TERBINAFINE HYDROCHLORIDE
  18. VALTREX [Concomitant]
     Active Substance: VALACYCLOVIR HYDROCHLORIDE
  19. GREEN COFFEE BEAN [Concomitant]
  20. VITAMIN C [Concomitant]
     Active Substance: ASCORBIC ACID
  21. CHLORTHALIDONE. [Concomitant]
     Active Substance: CHLORTHALIDONE
  22. PROGESTERONE. [Concomitant]
     Active Substance: PROGESTERONE
  23. HYDROCHLOROTHIAZID [Concomitant]
     Active Substance: HYDROCHLOROTHIAZIDE
  24. COENZYME Q10 [Concomitant]
     Active Substance: UBIDECARENONE
  25. XYREM [Suspect]
     Active Substance: SODIUM OXYBATE
     Indication: CATAPLEXY
     Dosage: 1.5 G, BID
     Route: 048
     Dates: start: 201512, end: 201601
  26. FLAXSEED [Concomitant]
     Active Substance: FLAX SEED
  27. MODAFINIL. [Concomitant]
     Active Substance: MODAFINIL
  28. XYREM [Suspect]
     Active Substance: SODIUM OXYBATE
     Indication: NARCOLEPSY
     Dosage: 1.5 G, BID
     Route: 048
     Dates: start: 200805, end: 2008
  29. MULTIVITAMIN [Concomitant]
     Active Substance: VITAMINS

REACTIONS (1)
  - Drug effect decreased [Unknown]
